FAERS Safety Report 5032251-X (Version None)
Quarter: 2006Q2

REPORT INFORMATION
  Report Type: 
  Country: None (occurrence: None)
  Receive Date: 20060619
  Receipt Date: 20060605
  Transmission Date: 20061013
  Serious: Yes (Death)
  Sender: FDA-Public Use
  Company Number: 225939

PATIENT
  Age: 54 Year
  Sex: Male
  Weight: 64.8 kg

DRUGS (8)
  1. AVASTIN [Suspect]
     Indication: MALIGNANT FIBROUS HISTIOCYTOMA
     Dosage: 5 MG/KG, DAYS 1+15, INTRAVENOUS
     Route: 042
     Dates: start: 20060111, end: 20060417
  2. BAY 43-9006 (SORAFENIB) [Suspect]
     Indication: MALIGNANT FIBROUS HISTIOCYTOMA
     Dosage: 200 MG, BID, ORAL
     Route: 048
     Dates: end: 20060430
  3. MORPHINE [Concomitant]
  4. HCTZ (HYDROCHLOROTHIAZIDE) [Concomitant]
  5. LISINOPRIL [Concomitant]
  6. MAXZIDE (HYDROCHLOROTHIAZIDE) [Concomitant]
  7. LISINOPRIL [Concomitant]
  8. MAXZIDE [Concomitant]

REACTIONS (14)
  - ACTIVATED PARTIAL THROMBOPLASTIN TIME PROLONGED [None]
  - ANOREXIA [None]
  - AXILLARY MASS [None]
  - CONDITION AGGRAVATED [None]
  - COUGH [None]
  - DYSPHONIA [None]
  - FATIGUE [None]
  - HAEMATEMESIS [None]
  - NEUTROPHIL PERCENTAGE INCREASED [None]
  - PLATELET COUNT INCREASED [None]
  - PULMONARY HAEMORRHAGE [None]
  - PULMONARY HILUM MASS [None]
  - WEIGHT DECREASED [None]
  - WHITE BLOOD CELL COUNT INCREASED [None]
